FAERS Safety Report 7190141-0 (Version None)
Quarter: 2010Q4

REPORT INFORMATION
  Report Type: 
  Country: None (occurrence: None)
  Receive Date: 20101223
  Receipt Date: 20101215
  Transmission Date: 20110411
  Serious: Yes (Life-Threatening, Disabling)
  Sender: FDA-Public Use
  Company Number: JP-BRISTOL-MYERS SQUIBB COMPANY-15443922

PATIENT
  Age: 62 Year
  Sex: Male

DRUGS (9)
  1. MAXIPIME [Suspect]
     Indication: PNEUMONIA
     Route: 041
     Dates: start: 20101214, end: 20101214
  2. OXYCONTIN [Concomitant]
     Dosage: 14-DEC-2010, DISCONTINUED
     Route: 048
     Dates: end: 20101214
  3. LOXONIN [Concomitant]
     Dosage: 14-DEC-2010, DISCONTINUED
     Route: 048
     Dates: end: 20101214
  4. MAGMITT [Concomitant]
     Dosage: 14-DEC-2010, DISCONTINUED
     Route: 048
     Dates: end: 20101214
  5. TAKEPRON [Concomitant]
     Dosage: 14-DEC-2010, DISCONTINUED
     Route: 048
     Dates: end: 20101214
  6. BLOPRESS [Concomitant]
     Dosage: 14-DEC-2010, DISCONTINUED
     Route: 048
     Dates: end: 20101214
  7. LYRICA [Concomitant]
     Dosage: 14-DEC-2010, DISCONTINUED
     Route: 048
     Dates: end: 20101214
  8. ZYLORIC [Concomitant]
     Route: 048
     Dates: end: 20101214
  9. PANVITAN [Concomitant]
     Route: 048
     Dates: end: 20101214

REACTIONS (3)
  - ANAPHYLACTIC SHOCK [None]
  - APALLIC SYNDROME [None]
  - CARDIO-RESPIRATORY ARREST [None]
